FAERS Safety Report 6265987-3 (Version None)
Quarter: 2009Q3

REPORT INFORMATION
  Report Type: 
  Country: None (occurrence: None)
  Receive Date: 20090713
  Receipt Date: 20090630
  Transmission Date: 20100115
  Serious: No
  Sender: FDA-Public Use
  Company Number: BR-ROCHE-588387

PATIENT
  Sex: Male
  Weight: 2.9 kg

DRUGS (1)
  1. ROACUTAN [Suspect]
     Route: 064
     Dates: start: 20071001, end: 20080401

REACTIONS (2)
  - FOETAL MALPRESENTATION [None]
  - NORMAL NEWBORN [None]
